FAERS Safety Report 9470883 (Version 1)
Quarter: 2013Q3

REPORT INFORMATION
  Report Type: Spontaneous
  Country: US (occurrence: US)
  Receive Date: 20130822
  Receipt Date: 20130822
  Transmission Date: 20140515
  Serious: No
  Sender: FDA-Public Use
  Company Number: US-MYLANLABS-2013S1004984

PATIENT
  Sex: Male

DRUGS (6)
  1. ULTIVA [Suspect]
     Route: 042
     Dates: start: 20130202, end: 20130202
  2. DIPRIVAN [Concomitant]
     Dates: start: 20130202, end: 20130202
  3. SUPRANE [Concomitant]
     Dates: start: 20130202, end: 20130202
  4. DILAUDID [Concomitant]
     Dates: start: 20130202, end: 20130202
  5. PERCOCET [Concomitant]
     Indication: PAIN
  6. OXYCODONE [Concomitant]

REACTIONS (2)
  - Hyperaesthesia [Recovered/Resolved]
  - Hypertension [Recovered/Resolved]
